FAERS Safety Report 5116857-5 (Version None)
Quarter: 2006Q3

REPORT INFORMATION
  Report Type: 
  Country: None (occurrence: None)
  Receive Date: 20060925
  Receipt Date: 20060910
  Transmission Date: 20061208
  Serious: Yes (Other)
  Sender: FDA-Public Use
  Company Number: 2006109746

PATIENT
  Sex: Female
  Weight: 112.4921 kg

DRUGS (7)
  1. NEURONTIN [Suspect]
     Indication: NERVE INJURY
     Dosage: (100 MG)
     Dates: start: 20050901, end: 20060101
  2. LYRICA [Suspect]
     Indication: NERVE INJURY
     Dosage: 200 MG (3 IN 1 D);
     Dates: start: 20060101
  3. IBUPROFEN [Concomitant]
  4. VITAMIN E [Concomitant]
  5. VITAMIN B6 [Concomitant]
  6. VITAMIN B-12 [Concomitant]
  7. ASCORBIC ACID [Concomitant]

REACTIONS (8)
  - BREAKTHROUGH PAIN [None]
  - DRUG INEFFECTIVE [None]
  - FEAR OF DISEASE [None]
  - FEELING ABNORMAL [None]
  - MEMORY IMPAIRMENT [None]
  - OEDEMA PERIPHERAL [None]
  - PAIN IN EXTREMITY [None]
  - THINKING ABNORMAL [None]
